FAERS Safety Report 7429863-2 (Version None)
Quarter: 2011Q2

REPORT INFORMATION
  Report Type: 
  Country: None (occurrence: None)
  Receive Date: 20110421
  Receipt Date: 20110413
  Transmission Date: 20111010
  Serious: Yes (Other)
  Sender: FDA-Public Use
  Company Number: US-ASTRAZENECA-2009UW14356

PATIENT
  Age: 42 Year
  Sex: Female
  Weight: 113.4 kg

DRUGS (11)
  1. VYTORIN [Concomitant]
     Indication: HYPERLIPIDAEMIA
     Dosage: 10/40 MG
     Dates: start: 20080101
  2. SEROQUEL [Suspect]
     Indication: BIPOLAR DISORDER
     Route: 048
     Dates: start: 20080101, end: 20090101
  3. SEROQUEL [Suspect]
     Indication: DEPRESSION
     Route: 048
     Dates: start: 20080101, end: 20090101
  4. SEROQUEL [Suspect]
     Route: 048
     Dates: start: 20080304, end: 20090101
  5. ROZEREM [Concomitant]
     Indication: INSOMNIA
     Dates: start: 20080304
  6. SEROQUEL [Suspect]
     Route: 048
     Dates: start: 20080304, end: 20090101
  7. RELAFEN [Concomitant]
     Indication: ARTHRITIS
     Dates: start: 20080304
  8. ATIVAN [Concomitant]
     Indication: ANXIETY DISORDER
     Dates: start: 20080101
  9. MAXALT [Concomitant]
     Indication: MIGRAINE
     Dates: start: 20080304
  10. CLONIDINE [Concomitant]
     Indication: HYPERTENSION
     Dates: start: 20080101
  11. LORTAB [Concomitant]
     Indication: MIGRAINE
     Dates: start: 20080101

REACTIONS (7)
  - NEUROLEPTIC MALIGNANT SYNDROME [None]
  - NEUROPATHY PERIPHERAL [None]
  - OBESITY [None]
  - BLOOD CHOLESTEROL INCREASED [None]
  - TYPE 2 DIABETES MELLITUS [None]
  - WEIGHT INCREASED [None]
  - TARDIVE DYSKINESIA [None]
